FAERS Safety Report 17256242 (Version 3)
Quarter: 2021Q3

REPORT INFORMATION
  Report Type: Other
  Country: ES (occurrence: ES)
  Receive Date: 20200110
  Receipt Date: 20210702
  Transmission Date: 20211014
  Serious: Yes (Other)
  Sender: FDA-Public Use
  Company Number: ES-ROCHE-2517814

PATIENT

DRUGS (2)
  1. RITUXIMAB. [Suspect]
     Active Substance: RITUXIMAB
     Indication: MANTLE CELL LYMPHOMA
     Dosage: 8 DOSES
     Route: 041
  2. IBRUTINIB [Suspect]
     Active Substance: IBRUTINIB
     Indication: MANTLE CELL LYMPHOMA
     Route: 065

REACTIONS (6)
  - Lumbar vertebral fracture [Unknown]
  - Toxic skin eruption [Unknown]
  - Adenocarcinoma pancreas [Unknown]
  - Aplastic anaemia [Unknown]
  - Haematotoxicity [Unknown]
  - Neutropenia [Unknown]
